FAERS Safety Report 24980171 (Version 4)
Quarter: 2025Q1

REPORT INFORMATION
  Report Type: Spontaneous
  Country: US (occurrence: US)
  Receive Date: 20250218
  Receipt Date: 20250305
  Transmission Date: 20250409
  Serious: No
  Sender: BIOGEN
  Company Number: US-BIOGEN-2025BI01301072

PATIENT
  Sex: Male

DRUGS (1)
  1. TYSABRI [Suspect]
     Active Substance: NATALIZUMAB
     Indication: Multiple sclerosis
     Dosage: INFUSED OVER 1 HOUR
     Route: 050
     Dates: start: 20230516

REACTIONS (5)
  - Intervertebral disc protrusion [Not Recovered/Not Resolved]
  - Illness [Unknown]
  - Cough [Unknown]
  - Burning sensation [Unknown]
  - Spinal cord compression [Unknown]
